FAERS Safety Report 18939494 (Version 2)
Quarter: 2021Q1

REPORT INFORMATION
  Report Type: Report from Study
  Country: IL (occurrence: IL)
  Receive Date: 20210225
  Receipt Date: 20210301
  Transmission Date: 20210420
  Serious: Yes (Hospitalization, Other)
  Sender: FDA-Public Use
  Company Number: NVSC2021IL035234

PATIENT
  Age: 2 Month
  Sex: Male
  Weight: 3.69 kg

DRUGS (1)
  1. ZOLGENSMA [Suspect]
     Active Substance: ONASEMNOGENE ABEPARVOVEC-XIOI
     Indication: SPINAL MUSCULAR ATROPHY
     Dosage: 22 ML, ONCE/SINGLE
     Route: 042
     Dates: start: 20210108

REACTIONS (6)
  - Mitral valve incompetence [Unknown]
  - Cardiac valve thickening [Unknown]
  - Troponin I increased [Not Recovered/Not Resolved]
  - Atrial septal defect [Not Recovered/Not Resolved]
  - Hypertrophic cardiomyopathy [Not Recovered/Not Resolved]
  - Left ventricular dysfunction [Unknown]

NARRATIVE: CASE EVENT DATE: 20210216
